FAERS Safety Report 23171355 (Version 1)
Quarter: 2023Q4

REPORT INFORMATION
  Report Type: Spontaneous
  Country: US (occurrence: US)
  Receive Date: 20231110
  Receipt Date: 20231110
  Transmission Date: 20240110
  Serious: No
  Sender: FDA-Public Use
  Company Number: US-SA-SAC20231102000148

PATIENT

DRUGS (12)
  1. DUPIXENT [Suspect]
     Active Substance: DUPILUMAB
     Dosage: UNK (700 MG)
     Route: 058
     Dates: start: 20231017
  2. OPZELURA [Concomitant]
     Active Substance: RUXOLITINIB PHOSPHATE
     Dosage: UNK
  3. CETIRIZINE [Concomitant]
     Active Substance: CETIRIZINE HYDROCHLORIDE
     Dosage: UNK
     Route: 048
  4. FAMOTIDINE [Concomitant]
     Active Substance: FAMOTIDINE
  5. GABAPENTIN [Concomitant]
     Active Substance: GABAPENTIN
     Dosage: UNK
  6. OMEPRAZOLE [Concomitant]
     Active Substance: OMEPRAZOLE
  7. CELECOXIB [Concomitant]
     Active Substance: CELECOXIB
  8. MINOXIDIL [Concomitant]
     Active Substance: MINOXIDIL
  9. ROSUVASTATIN [Concomitant]
     Active Substance: ROSUVASTATIN
  10. COMIRNATY (TOZINAMERAN) [Concomitant]
     Active Substance: TOZINAMERAN
  11. FINASTERIDE [Concomitant]
     Active Substance: FINASTERIDE
  12. FLUZONE HIGH-DOSE NOS [Concomitant]
     Active Substance: INFLUENZA A VIRUS A/CALIFORNIA/7/2009 X-179A (H1N1) ANTIGEN (FORMALDEHYDE INACTIVATED)\INFLUENZA A V
     Indication: Immunisation
     Dosage: UNK

REACTIONS (2)
  - Peripheral swelling [Unknown]
  - Intentional product misuse [Unknown]

NARRATIVE: CASE EVENT DATE: 20230101
